FAERS Safety Report 25643408 (Version 3)
Quarter: 2025Q3

REPORT INFORMATION
  Report Type: Spontaneous
  Country: JP (occurrence: JP)
  Receive Date: 20250805
  Receipt Date: 20250908
  Transmission Date: 20251020
  Serious: Yes (Hospitalization)
  Sender: ASTELLAS
  Company Number: JP-ASTELLAS-2025-AER-039386

PATIENT
  Age: 83 Year
  Sex: Male
  Weight: 53 kg

DRUGS (6)
  1. XTANDI [Suspect]
     Active Substance: ENZALUTAMIDE
     Indication: Hormone-refractory prostate cancer
     Dosage: 40MG?2T/DAY, ONCE
     Route: 065
     Dates: start: 20250517, end: 20250530
  2. XTANDI [Suspect]
     Active Substance: ENZALUTAMIDE
     Dosage: 40MG?3T/DAY, ONCE
     Route: 065
     Dates: start: 20250531, end: 20250713
  3. CEFAZOLIN [Concomitant]
     Active Substance: CEFAZOLIN
     Indication: Product used for unknown indication
     Route: 065
     Dates: start: 20250612
  4. Beova 50 [Concomitant]
     Indication: Product used for unknown indication
     Route: 065
     Dates: start: 20250625
  5. VONOPRAZAN FUMARATE [Concomitant]
     Active Substance: VONOPRAZAN FUMARATE
     Indication: Decreased appetite
     Route: 065
     Dates: start: 20250709
  6. VONOPRAZAN FUMARATE [Concomitant]
     Active Substance: VONOPRAZAN FUMARATE
     Indication: Nausea

REACTIONS (2)
  - Hepatic function abnormal [Recovering/Resolving]
  - Underdose [Unknown]

NARRATIVE: CASE EVENT DATE: 20250517
